FAERS Safety Report 15676877 (Version 3)
Quarter: 2018Q4

REPORT INFORMATION
  Report Type: Spontaneous
  Country: US (occurrence: US)
  Receive Date: 20181130
  Receipt Date: 20181231
  Transmission Date: 20190205
  Serious: No
  Sender: FDA-Public Use
  Company Number: US-PFIZER INC-2018483415

PATIENT
  Age: 28 Year
  Sex: Female

DRUGS (3)
  1. EUCRISA [Suspect]
     Active Substance: CRISABOROLE
     Indication: ECZEMA
     Dosage: UNK UNK, 2X/DAY (60GM)
     Dates: start: 201811, end: 20181117
  2. EVENING PRIMROSE OIL [Concomitant]
     Active Substance: EVENING PRIMROSE OIL\HERBALS
     Dosage: UNK UNK, 3X/DAY
  3. OMEGA 3 [FISH OIL;TOCOPHEROL] [Concomitant]
     Dosage: UNK UNK, 2X/DAY

REACTIONS (7)
  - Skin disorder [Unknown]
  - Application site pain [Recovering/Resolving]
  - Pruritus [Unknown]
  - Eczema [Unknown]
  - Drug hypersensitivity [Recovering/Resolving]
  - Condition aggravated [Unknown]
  - Rash [Unknown]

NARRATIVE: CASE EVENT DATE: 20181106
